FAERS Safety Report 16484955 (Version 1)
Quarter: 2019Q2

REPORT INFORMATION
  Report Type: Spontaneous
  Country: TR (occurrence: TR)
  Receive Date: 20190627
  Receipt Date: 20190627
  Transmission Date: 20190711
  Serious: Yes (Other)
  Sender: FDA-Public Use
  Company Number: TR-009507513-1906TUR010521

PATIENT
  Age: 25 Year
  Sex: Female

DRUGS (2)
  1. BETAMETHASONE VALERATE. [Suspect]
     Active Substance: BETAMETHASONE VALERATE
     Indication: PSORIASIS
     Dosage: UNK
     Route: 061
  2. BETAMETHASONE VALERATE. [Suspect]
     Active Substance: BETAMETHASONE VALERATE
     Indication: INTERTRIGO

REACTIONS (1)
  - Skin ulcer [Unknown]
